FAERS Safety Report 10040691 (Version 2)
Quarter: 2014Q2

REPORT INFORMATION
  Report Type: Spontaneous
  Country: AU (occurrence: AU)
  Receive Date: 20140327
  Receipt Date: 20140516
  Transmission Date: 20141212
  Serious: Yes (Hospitalization, Disabling, Other)
  Sender: FDA-Public Use
  Company Number: AU-ROCHE-1370232

PATIENT
  Age: 48 Year
  Sex: Male
  Weight: 98 kg

DRUGS (4)
  1. MABTHERA [Suspect]
     Indication: CHRONIC LYMPHOCYTIC LEUKAEMIA
     Dosage: ONE DOSE
     Route: 065
  2. MABTHERA [Suspect]
     Dosage: THREE DOSES
     Route: 042
     Dates: start: 20131231, end: 20140305
  3. FLUDARABINE [Concomitant]
     Indication: CHRONIC LYMPHOCYTIC LEUKAEMIA
     Route: 048
     Dates: start: 20131203, end: 20140305
  4. CYCLOPHOSPHAMIDE [Concomitant]
     Indication: CHRONIC LYMPHOCYTIC LEUKAEMIA
     Route: 048
     Dates: start: 20131203, end: 20140305

REACTIONS (4)
  - Progressive multifocal leukoencephalopathy [Unknown]
  - Dizziness [Not Recovered/Not Resolved]
  - Dysarthria [Not Recovered/Not Resolved]
  - Vomiting [Recovered/Resolved]
